FAERS Safety Report 8277550-3 (Version None)
Quarter: 2012Q2

REPORT INFORMATION
  Report Type: 
  Country: None (occurrence: None)
  Receive Date: 20120412
  Receipt Date: 20120323
  Transmission Date: 20120825
  Serious: Yes (Death, Hospitalization)
  Sender: FDA-Public Use
  Company Number: FR-CELGENEUS-056-21880-12012348

PATIENT
  Sex: Male
  Weight: 58 kg

DRUGS (32)
  1. REVLIMID [Suspect]
     Indication: KAPOSI'S SARCOMA
     Dosage: 25 MILLIGRAM
     Route: 048
     Dates: start: 20120105, end: 20120119
  2. RAMIPRIL [Concomitant]
     Indication: RENAL FAILURE
     Dosage: 5 MILLIGRAM
     Route: 065
     Dates: start: 20100817, end: 20110119
  3. FOLIC ACID [Concomitant]
     Dosage: 25 MILLIGRAM
     Route: 065
  4. CALCIPARINE [Concomitant]
     Route: 065
  5. FERROUS SULFATE TAB [Concomitant]
     Dosage: 160 MILLIGRAM
     Route: 065
  6. PRIMPERAN TAB [Concomitant]
     Dosage: 3 TABLESPOON
     Route: 065
  7. CYMEVAN [Concomitant]
     Indication: BICYTOPENIA
     Route: 065
  8. OXYCONTIN [Suspect]
     Indication: PAIN
     Dosage: 144 MILLIGRAM
     Route: 065
     Dates: start: 20101006
  9. DEXERYL [Concomitant]
     Dosage: .1429 DOSAGE FORMS
     Route: 065
  10. LEUCOVORIN CALCIUM [Concomitant]
     Route: 065
  11. CLONAZEPAM [Concomitant]
     Route: 065
  12. ZOLPIDEM TARTRATE [Concomitant]
     Dosage: 10 MILLIGRAM
     Route: 065
  13. CYMBALTA [Concomitant]
     Dosage: 30 MILLIGRAM
     Route: 065
  14. OXYCODONE HCL [Concomitant]
     Route: 065
  15. LORAZEPAM [Concomitant]
     Dosage: 1 MILLIGRAM
     Route: 065
  16. DUPHALAC [Concomitant]
     Dosage: 2 DOSAGE FORMS
     Route: 065
  17. ISENTRESS [Concomitant]
     Dosage: 800 UNKNOWN
     Route: 048
     Dates: start: 20100429
  18. OXYCODONE HCL [Concomitant]
     Indication: PAIN
     Dosage: 120 MILLIGRAM
     Route: 065
     Dates: start: 20120113
  19. ARANESP [Concomitant]
     Route: 065
  20. PANTOPRAZOLE SODIUM [Concomitant]
     Route: 065
  21. FLUCONAZOLE [Concomitant]
     Route: 065
  22. PREVISCAN [Concomitant]
     Indication: THROMBOSIS PROPHYLAXIS
     Route: 065
     Dates: start: 20090525
  23. RABEPRAZOLE SODIUM [Concomitant]
     Dosage: 40 MILLIGRAM
     Route: 065
  24. POLYETHYLENE GLYCOL [Concomitant]
     Route: 065
  25. KAYEXALATE [Concomitant]
     Dosage: .2857 DOSAGE FORMS
     Route: 065
  26. TRUVADA [Suspect]
     Dosage: .5 TABLET
     Route: 048
     Dates: start: 20100429, end: 20120203
  27. KALETRA [Concomitant]
     Dosage: 4 TABLET
     Route: 048
     Dates: start: 20100429
  28. ZOLPIDEM TARTRATE [Concomitant]
     Indication: INSOMNIA
     Route: 065
     Dates: start: 20091002
  29. FOLIC ACID [Concomitant]
     Dosage: 10 MILLIGRAM
  30. VENTOLIN [Concomitant]
     Route: 065
  31. FOLIC ACID [Concomitant]
     Route: 065
  32. ECONAZOLE NITRATE [Concomitant]
     Dosage: 2 DOSAGE FORMS
     Route: 065

REACTIONS (8)
  - ANAEMIA [None]
  - NEPHROTIC SYNDROME [None]
  - HYPERKALAEMIA [None]
  - RENAL FAILURE CHRONIC [None]
  - CONFUSIONAL STATE [None]
  - PARAESTHESIA [None]
  - ASTHENIA [None]
  - RENAL FAILURE ACUTE [None]
